APPROVED DRUG PRODUCT: PEG-3350, SODIUM CHLORIDE, SODIUM BICARBONATE, POTASSIUM CHLORIDE AND BISACODYL
Active Ingredient: BISACODYL; POLYETHYLENE GLYCOL 3350; POTASSIUM CHLORIDE; SODIUM BICARBONATE; SODIUM CHLORIDE
Strength: 5MG,N/A;N/A,210GM;N/A,0.74GM;N/A,2.86GM;N/A,5.6GM
Dosage Form/Route: FOR SOLUTION, TABLET, DELAYED RELEASE;ORAL
Application: A202217 | Product #001
Applicant: NOVEL LABORATORIES INC
Approved: Aug 20, 2014 | RLD: No | RS: No | Type: DISCN